FAERS Safety Report 9283567 (Version 1)
Quarter: 2013Q2

REPORT INFORMATION
  Report Type: Spontaneous
  Country: US (occurrence: US)
  Receive Date: 20130510
  Receipt Date: 20130510
  Transmission Date: 20140414
  Serious: Yes (Hospitalization)
  Sender: FDA-Public Use
  Company Number: PHEH2013US010223

PATIENT
  Sex: Female

DRUGS (4)
  1. GLEEVEC [Suspect]
     Indication: CHRONIC MYELOID LEUKAEMIA
     Dosage: 3 DF, QD
     Route: 048
     Dates: start: 20120112
  2. GLEEVEC [Suspect]
     Dosage: 3 DF, QD
     Route: 048
  3. BOSUTINIB [Suspect]
     Dosage: UNK
     Route: 048
     Dates: start: 20130112
  4. BOSUTINIB [Suspect]
     Dosage: UNK

REACTIONS (9)
  - Liver disorder [Unknown]
  - Blood iron decreased [Unknown]
  - Renal disorder [Unknown]
  - Bronchitis [Unknown]
  - Oedema [Unknown]
  - Diarrhoea [Unknown]
  - Somnolence [Unknown]
  - Abdominal pain upper [Unknown]
  - Weight increased [Unknown]
